FAERS Safety Report 9137684 (Version 1)
Quarter: 2013Q1

REPORT INFORMATION
  Report Type: Spontaneous
  Country: US (occurrence: US)
  Receive Date: 20130304
  Receipt Date: 20130304
  Transmission Date: 20140127
  Serious: No
  Sender: FDA-Public Use
  Company Number: US-BAYER-2013-026813

PATIENT
  Age: 76 Year
  Sex: Female
  Weight: 65.76 kg

DRUGS (7)
  1. ALEVE CAPLET/TABLET,MIDOL EXTENDED RELIEF CAPLET [Suspect]
     Dosage: 1 DF, QD
     Route: 048
     Dates: start: 201301
  2. 1/2 ESTIC PLUS [Concomitant]
  3. ASPIRIN [Concomitant]
  4. PLAVIX [Concomitant]
  5. RESTASIS [Concomitant]
  6. PRED-FORTE [Concomitant]
  7. VALETAN [Concomitant]

REACTIONS (2)
  - Drug ineffective [None]
  - Drug ineffective [None]
